FAERS Safety Report 24362320 (Version 3)
Quarter: 2024Q4

REPORT INFORMATION
  Report Type: Spontaneous
  Country: IN (occurrence: IN)
  Receive Date: 20240925
  Receipt Date: 20241120
  Transmission Date: 20250115
  Serious: Yes (Death, Other)
  Sender: ROCHE
  Company Number: IN-ROCHE-10000089852

PATIENT
  Age: 26 Year
  Sex: Female

DRUGS (1)
  1. ALECENSA [Suspect]
     Active Substance: ALECTINIB HYDROCHLORIDE
     Indication: Anaplastic large cell lymphoma T- and null-cell types
     Route: 048

REACTIONS (3)
  - Neoplasm malignant [Fatal]
  - Disease progression [Unknown]
  - Off label use [Unknown]
